FAERS Safety Report 19375860 (Version 1)
Quarter: 2021Q2

REPORT INFORMATION
  Report Type: Spontaneous
  Country: BR (occurrence: BR)
  Receive Date: 20210605
  Receipt Date: 20210605
  Transmission Date: 20210717
  Serious: Yes (Hospitalization, Other)
  Sender: FDA-Public Use
  Company Number: BR-ABBVIE-21P-020-3935996-00

PATIENT
  Sex: Female
  Weight: 66 kg

DRUGS (7)
  1. SYNTHROID [Suspect]
     Active Substance: LEVOTHYROXINE SODIUM
     Indication: AUTOIMMUNE THYROIDITIS
     Dosage: 1 TABLET IN FASTING EVERYDAY
     Route: 048
     Dates: start: 2000
  2. SYNTHROID [Suspect]
     Active Substance: LEVOTHYROXINE SODIUM
     Indication: HYPOTHYROIDISM
  3. METFORMIN HYDROCHLORIDE. [Concomitant]
     Active Substance: METFORMIN HYDROCHLORIDE
     Indication: DIABETES MELLITUS
     Dosage: 3 TIMES A DAY, MORNING, LUNCH AND AT NIGHT
     Route: 048
     Dates: start: 2000
  4. TREZOR [Concomitant]
     Indication: BLOOD GLUCOSE
     Dosage: AT NIGHT
     Route: 048
     Dates: start: 2000
  5. QUETIAPINE. [Concomitant]
     Active Substance: QUETIAPINE
     Indication: SLEEP DISORDER
     Dosage: AT NIGHT
     Route: 048
     Dates: start: 2000
  6. ALPRAZOLAN [Concomitant]
     Active Substance: ALPRAZOLAM
     Indication: SLEEP DISORDER
     Dosage: AT NIGHT
     Route: 048
     Dates: start: 2000
  7. PRISTIQ EXTENDED?RELEASE [Concomitant]
     Active Substance: DESVENLAFAXINE SUCCINATE
     Indication: DEPRESSION
     Dosage: IN THE MORNING, SOMETIMES TAKES 2 WHEN SHE^S NOT VERY WELL, PHYSICIAN TOLD
     Route: 048
     Dates: start: 2000

REACTIONS (2)
  - Leukaemia [Unknown]
  - Weight decreased [Unknown]

NARRATIVE: CASE EVENT DATE: 202005
